FAERS Safety Report 5239734-8 (Version None)
Quarter: 2007Q1

REPORT INFORMATION
  Report Type: 
  Country: None (occurrence: None)
  Receive Date: 20070216
  Receipt Date: 20070213
  Transmission Date: 20070707
  Serious: Yes (Hospitalization)
  Sender: FDA-Public Use
  Company Number: US-JNJFOC-20061205736

PATIENT
  Sex: Female
  Weight: 107.05 kg

DRUGS (4)
  1. ORTHO EVRA [Suspect]
     Indication: OVARIAN CYST
     Route: 062
     Dates: start: 20061109, end: 20061206
  2. ORTHO EVRA [Suspect]
     Indication: MENSTRUATION IRREGULAR
     Route: 062
     Dates: start: 20061109, end: 20061206
  3. CARDIZEM [Concomitant]
     Indication: BLOOD PRESSURE
  4. SYNTHROID [Concomitant]

REACTIONS (2)
  - DEEP VEIN THROMBOSIS [None]
  - FALL [None]
